FAERS Safety Report 12340313 (Version 4)
Quarter: 2017Q2

REPORT INFORMATION
  Report Type: Report from Study
  Country: US (occurrence: US)
  Receive Date: 20160506
  Receipt Date: 20170504
  Transmission Date: 20170830
  Serious: Yes (Other)
  Sender: FDA-Public Use
  Company Number: PHHO2016US006335

PATIENT
  Age: 45 Year
  Sex: Female
  Weight: 97.52 kg

DRUGS (1)
  1. GILENYA [Suspect]
     Active Substance: FINGOLIMOD HYDROCHLORIDE
     Indication: MULTIPLE SCLEROSIS
     Dosage: 0.5 MG, QD
     Route: 048
     Dates: start: 20130416, end: 20160428

REACTIONS (1)
  - Leiomyoma [Recovered/Resolved]

NARRATIVE: CASE EVENT DATE: 20160228
